FAERS Safety Report 16217968 (Version 2)
Quarter: 2019Q3

REPORT INFORMATION
  Report Type: Report from Study
  Country: JP (occurrence: JP)
  Receive Date: 20190419
  Receipt Date: 20190822
  Transmission Date: 20191004
  Serious: Yes (Other)
  Sender: FDA-Public Use
  Company Number: JP-OTSUKA-2016_012304

PATIENT
  Age: 59 Year
  Sex: Female
  Weight: 51.1 kg

DRUGS (7)
  1. TOLVAPTAN [Suspect]
     Active Substance: TOLVAPTAN
     Indication: CONGENITAL CYSTIC KIDNEY DISEASE
     Dosage: 30 MG, QD
     Route: 048
     Dates: start: 20160616, end: 20180215
  2. TOLVAPTAN [Suspect]
     Active Substance: TOLVAPTAN
     Dosage: 60 MG/DAY, DAILY DOSE (DIVIDED 2 DOSES)
     Route: 048
     Dates: start: 20151211, end: 20160303
  3. BISOPROLOL [Concomitant]
     Active Substance: BISOPROLOL
     Indication: PRODUCT USED FOR UNKNOWN INDICATION
     Dosage: 2.5 MG, QD
     Route: 048
     Dates: start: 20180322
  4. TOLVAPTAN [Suspect]
     Active Substance: TOLVAPTAN
     Dosage: 30 MG/DAY, DAILY DOSE (DIVIDED 2 DOSES)
     Route: 048
     Dates: start: 20151027, end: 20151210
  5. TOLVAPTAN [Suspect]
     Active Substance: TOLVAPTAN
     Dosage: 45 MG/DAY, DAILY DOSE (DIVIDED 2 DOSES)
     Route: 048
     Dates: start: 20160304, end: 20160615
  6. TOLVAPTAN [Suspect]
     Active Substance: TOLVAPTAN
     Dosage: 15 MG, QD
     Route: 048
     Dates: start: 20180216, end: 20181025
  7. TOLVAPTAN [Suspect]
     Active Substance: TOLVAPTAN
     Dosage: 15 MG, QD
     Route: 048
     Dates: start: 20151026, end: 20151026

REACTIONS (12)
  - Hypocalcaemia [Recovered/Resolved]
  - Nephrogenic anaemia [Recovering/Resolving]
  - Iron deficiency anaemia [Recovered/Resolved]
  - Hepatic function abnormal [Recovered/Resolved]
  - Blood creatinine increased [Recovered/Resolved]
  - Cystitis bacterial [Recovering/Resolving]
  - Renal impairment [Not Recovered/Not Resolved]
  - Inappropriate schedule of product administration [Unknown]
  - Hypertension [Recovering/Resolving]
  - Renal impairment [Recovering/Resolving]
  - Hypertension [Recovered/Resolved]
  - Renal impairment [Recovered/Resolved]

NARRATIVE: CASE EVENT DATE: 20160303
